FAERS Safety Report 6828932-5 (Version None)
Quarter: 2010Q3

REPORT INFORMATION
  Report Type: 
  Country: None (occurrence: None)
  Receive Date: 20100709
  Receipt Date: 20070222
  Transmission Date: 20110219
  Serious: No
  Sender: FDA-Public Use
  Company Number: US-PFIZER INC-2007008719

PATIENT
  Age: 52 Year
  Sex: Female
  Weight: 70.31 kg

DRUGS (4)
  1. CHANTIX [Suspect]
     Indication: SMOKING CESSATION THERAPY
     Dates: start: 20061101
  2. SOMA [Concomitant]
     Indication: MYALGIA
  3. ZANTAC [Concomitant]
     Indication: GASTRIC DISORDER
  4. OMEPRAZOLE [Concomitant]
     Indication: GASTRIC DISORDER

REACTIONS (5)
  - ANXIETY [None]
  - CHEST DISCOMFORT [None]
  - FLATULENCE [None]
  - HERNIA [None]
  - STRESS [None]
